FAERS Safety Report 5375709-6 (Version None)
Quarter: 2007Q2

REPORT INFORMATION
  Report Type: 
  Country: None (occurrence: None)
  Receive Date: 20070628
  Receipt Date: 20070619
  Transmission Date: 20071010
  Serious: Yes (Death, Hospitalization)
  Sender: FDA-Public Use
  Company Number: 2007-02927

PATIENT
  Age: 20 Year
  Sex: Male

DRUGS (1)
  1. COLCHICUM JTL LIQ [Suspect]
     Indication: COMPLETED SUICIDE
     Dosage: 40 MG, SINGLE, ORAL
     Route: 048
     Dates: start: 20070101, end: 20070101

REACTIONS (9)
  - ABDOMINAL PAIN [None]
  - COAGULOPATHY [None]
  - DIARRHOEA [None]
  - HYPOTENSION [None]
  - HYPOXIA [None]
  - INTENTIONAL OVERDOSE [None]
  - MULTI-ORGAN FAILURE [None]
  - OLIGURIA [None]
  - TACHYCARDIA [None]
